FAERS Safety Report 5565218-3 (Version None)
Quarter: 2007Q4

REPORT INFORMATION
  Report Type: 
  Country: None (occurrence: None)
  Receive Date: 20071218
  Receipt Date: 20071207
  Transmission Date: 20080405
  Serious: Yes (Other)
  Sender: FDA-Public Use
  Company Number: US-AVENTIS-200718551US

PATIENT
  Sex: Female

DRUGS (7)
  1. INDAPAMIDE [Suspect]
     Indication: HYPERTENSION
     Route: 048
     Dates: start: 20070101
  2. INDAPAMIDE [Suspect]
     Dosage: DOSE: UNK
     Dates: end: 20000101
  3. LISINOPRIL [Suspect]
     Indication: HYPERTENSION
     Route: 048
  4. VITAMINS [Concomitant]
     Dosage: DOSE: UNK
  5. PULMICORT [Concomitant]
     Indication: ASTHMA
     Dosage: DOSE: UNK
     Route: 055
  6. COMBIVENT                          /01033501/ [Concomitant]
     Indication: ASTHMA
     Dosage: DOSE: UNK
     Route: 055
  7. EYE DROPS [Concomitant]
     Indication: GLAUCOMA
     Dosage: DOSE: UNK
     Route: 031

REACTIONS (1)
  - BLADDER NEOPLASM [None]
